FAERS Safety Report 8804633 (Version 2)
Quarter: 2012Q4

REPORT INFORMATION
  Report Type: 
  Country: US (occurrence: US)
  Receive Date: 20120924
  Receipt Date: 20121025
  Transmission Date: 20130627
  Serious: Yes (Death)
  Sender: FDA-Public Use
  Company Number: US-ACTELION-A-NJ2012-71596

PATIENT
  Age: 68 Year
  Sex: Female

DRUGS (2)
  1. TRACLEER [Suspect]
     Indication: PULMONARY ARTERIAL HYPERTENSION
     Dosage: UNK
     Route: 048
     Dates: end: 20120502
  2. ASPIRIN [Concomitant]

REACTIONS (3)
  - Failure to thrive [Fatal]
  - Systemic sclerosis [Fatal]
  - Anaemia [Unknown]
